FAERS Safety Report 6384560-X (Version None)
Quarter: 2009Q4

REPORT INFORMATION
  Report Type: 
  Country: None (occurrence: None)
  Receive Date: 20091001
  Receipt Date: 20090928
  Transmission Date: 20100525
  Serious: Yes (Death, Other)
  Sender: FDA-Public Use
  Company Number: US-WYE-H11241609

PATIENT
  Age: 74 Year
  Sex: Male

DRUGS (2)
  1. CORDARONE [Suspect]
     Indication: ATRIAL FIBRILLATION
     Route: 048
     Dates: start: 20080701, end: 20080101
  2. CORDARONE [Suspect]
     Route: 048
     Dates: start: 20080101, end: 20081001

REACTIONS (5)
  - BLOOD BILIRUBIN INCREASED [None]
  - CARDIAC OPERATION [None]
  - CHOLESTATIC LIVER INJURY [None]
  - HEPATIC ENZYME INCREASED [None]
  - MULTI-ORGAN FAILURE [None]
